FAERS Safety Report 6683410-1 (Version None)
Quarter: 2010Q2

REPORT INFORMATION
  Report Type: 
  Country: None (occurrence: None)
  Receive Date: 20100415
  Receipt Date: 20100407
  Transmission Date: 20101027
  Serious: Yes (Death, Life-Threatening, Disabling, Other)
  Sender: FDA-Public Use
  Company Number: US-BAXTER-2010BH008061

PATIENT
  Age: 56 Year
  Sex: Female

DRUGS (8)
  1. ROBINUL [Suspect]
     Indication: SALIVARY HYPERSECRETION
     Route: 048
     Dates: start: 20091014
  2. ROBINUL [Suspect]
     Route: 048
     Dates: start: 20090821
  3. TETRABENAZINE [Suspect]
     Indication: HUNTINGTON'S CHOREA
     Route: 048
     Dates: start: 20090807
  4. TETRABENAZINE [Suspect]
     Route: 048
  5. HALDOL [Concomitant]
     Indication: ANXIETY
     Route: 065
  6. BACLOFEN [Concomitant]
     Indication: DRUG USE FOR UNKNOWN INDICATION
     Route: 065
  7. PROZAC [Concomitant]
     Indication: ANXIETY
     Route: 065
  8. TETRABENAZINE [Concomitant]
     Indication: ANXIETY
     Route: 065

REACTIONS (9)
  - BEDRIDDEN [None]
  - DYSKINESIA [None]
  - GENERAL PHYSICAL HEALTH DETERIORATION [None]
  - HUNTINGTON'S CHOREA [None]
  - HYPERTONIA [None]
  - LOCKED-IN SYNDROME [None]
  - MOBILITY DECREASED [None]
  - MONOPLEGIA [None]
  - THIRST [None]
